FAERS Safety Report 10980852 (Version 2)
Quarter: 2015Q2

REPORT INFORMATION
  Report Type: Spontaneous
  Country: US (occurrence: US)
  Receive Date: 20150402
  Receipt Date: 20150525
  Transmission Date: 20150821
  Serious: Yes (Other)
  Sender: FDA-Public Use
  Company Number: US-JNJFOC-20090807857

PATIENT
  Age: 53 Year
  Sex: Male

DRUGS (5)
  1. MEVACOR [Concomitant]
     Active Substance: LOVASTATIN
     Dosage: WAS USED FOR 2 YEARS, BUT DISCONTINUED ONE WEEK PRIOR TO REACTION DUE TO RHABDOMYOSIS
     Route: 065
  2. TENORMIN [Concomitant]
     Active Substance: ATENOLOL
     Route: 065
  3. IMODIUM [Suspect]
     Active Substance: LOPERAMIDE HYDROCHLORIDE
     Route: 065
  4. IMODIUM [Suspect]
     Active Substance: LOPERAMIDE HYDROCHLORIDE
     Indication: PRODUCT USED FOR UNKNOWN INDICATION
     Route: 065
  5. ASPIRIN. [Concomitant]
     Active Substance: ASPIRIN
     Route: 065

REACTIONS (4)
  - Urticaria [Recovered/Resolved]
  - Glossitis [Recovered/Resolved]
  - Dyspnoea [Recovered/Resolved]
  - Oedema [Recovered/Resolved]
